FAERS Safety Report 12606319 (Version 1)
Quarter: 2016Q3

REPORT INFORMATION
  Report Type: Spontaneous
  Country: US (occurrence: US)
  Receive Date: 20160729
  Receipt Date: 20160729
  Transmission Date: 20161109
  Serious: Yes (Death)
  Sender: FDA-Public Use
  Company Number: US-INFO-000157

PATIENT
  Age: 39 Year
  Sex: Male

DRUGS (6)
  1. FLUCONAZOLE. [Suspect]
     Active Substance: FLUCONAZOLE
     Route: 065
  2. CEFTAZIDIME. [Suspect]
     Active Substance: CEFTAZIDIME
     Indication: OSTEOMYELITIS
     Route: 065
  3. MEROPENEM. [Suspect]
     Active Substance: MEROPENEM
     Indication: OSTEOMYELITIS
     Route: 065
  4. MICAFUNGIN [Suspect]
     Active Substance: MICAFUNGIN
     Route: 065
  5. VANCOMYCIN [Suspect]
     Active Substance: VANCOMYCIN
     Indication: OSTEOMYELITIS
     Route: 065
  6. ERTAPENEM [Suspect]
     Active Substance: ERTAPENEM
     Indication: OSTEOMYELITIS
     Route: 065

REACTIONS (1)
  - Drug ineffective [Fatal]
